FAERS Safety Report 10047377 (Version 2)
Quarter: 2014Q2

REPORT INFORMATION
  Report Type: Spontaneous
  Country: US (occurrence: None)
  Receive Date: 20140327
  Receipt Date: 20140408
  Transmission Date: 20141212
  Serious: Yes (Other)
  Sender: FDA-Public Use
  Company Number: 2256254

PATIENT
  Age: 67 Year
  Sex: Female
  Weight: 157 kg

DRUGS (3)
  1. LEVOPHED [Suspect]
     Indication: PRODUCT USED FOR UNKNOWN INDICATION
     Dosage: 2.8 ML/HR
  2. LORAZEPAM [Suspect]
     Indication: SEDATION
     Route: 041
     Dates: start: 20140303, end: 20140303
  3. VERSED [Suspect]
     Indication: SEDATION
     Dosage: 2 MG, 1 HOUR

REACTIONS (7)
  - Sedation [None]
  - Unresponsive to stimuli [None]
  - Incorrect drug administration rate [None]
  - Depressed level of consciousness [None]
  - Cardiopulmonary failure [None]
  - Intestinal ischaemia [None]
  - Post procedural complication [None]
